FAERS Safety Report 23069688 (Version 2)
Quarter: 2023Q4

REPORT INFORMATION
  Report Type: Report from Study
  Country: EG (occurrence: EG)
  Receive Date: 20231016
  Receipt Date: 20231030
  Transmission Date: 20240110
  Serious: Yes (Other)
  Sender: FDA-Public Use
  Company Number: EG-002147023-NVSC2023EG221635

PATIENT
  Sex: Female

DRUGS (10)
  1. ENTRESTO [Suspect]
     Active Substance: SACUBITRIL\VALSARTAN
     Indication: Cardiac failure
     Dosage: 1 DOSAGE FORM, BID (100MG)
     Route: 048
     Dates: start: 2021
  2. ENTRESTO [Suspect]
     Active Substance: SACUBITRIL\VALSARTAN
     Dosage: UNK UNK, BID (100MG, 1 TAB ON MORNING AND 2 TAB AT NIGHT)
     Route: 048
  3. DAPAGLIFLOZIN [Concomitant]
     Active Substance: DAPAGLIFLOZIN
     Indication: Cardiac disorder
     Dosage: 1 DOSAGE FORM, QD (STARTED 2 WEEKS AGO)
     Route: 048
  4. MAVILOR [Concomitant]
     Indication: Cardiac disorder
     Dosage: 1 DOSAGE FORM, QD (STARTED 2 WEEKS AGO)
     Route: 048
  5. IVABRADINE HYDROCHLORIDE [Concomitant]
     Active Substance: IVABRADINE HYDROCHLORIDE
     Indication: Cardiac disorder
     Dosage: 2 DOSAGE FORM, QD (STARTED 2 WEEKS AGO)
     Route: 048
  6. DOROFEN [Concomitant]
     Indication: Osteoporosis
     Dosage: 1 DOSAGE FORM, QD (STARTED 3 OR 4 YEARS AGO)
     Route: 048
  7. MYOFEN [Concomitant]
     Indication: Osteoporosis
     Dosage: 1 DOSAGE FORM, QD (STARTED 3 OR 4 YEARS AGO)
     Route: 048
  8. DIMRA [Concomitant]
     Indication: Osteoporosis
     Dosage: 1 DOSAGE FORM, QD (STARTED 3 OR 4 YEARS AGO)
     Route: 048
  9. MINERALS\VITAMINS [Concomitant]
     Active Substance: MINERALS\VITAMINS
     Indication: Osteoporosis
     Dosage: 1 DOSAGE FORM, QD (STARTED 3 OR 4 YEARS AGO)
     Route: 048
  10. ALFACALCIDOL [Concomitant]
     Active Substance: ALFACALCIDOL
     Indication: Osteoporosis
     Dosage: 1 DOSAGE FORM, QD (STARTED 3 OR 4 YEARS AGO)
     Route: 048

REACTIONS (10)
  - Ejection fraction decreased [Unknown]
  - Fatigue [Not Recovered/Not Resolved]
  - Lethargy [Not Recovered/Not Resolved]
  - Cardiomegaly [Unknown]
  - Ventricular extrasystoles [Unknown]
  - Insomnia [Unknown]
  - Paranoia [Unknown]
  - Phobia [Unknown]
  - Anxiety [Unknown]
  - Pain [Unknown]
